FAERS Safety Report 9587525 (Version 1)
Quarter: 2013Q4

REPORT INFORMATION
  Report Type: Report from Study
  Country: US (occurrence: US)
  Receive Date: 20131003
  Receipt Date: 20131003
  Transmission Date: 20140711
  Serious: Yes (Other)
  Sender: FDA-Public Use
  Company Number: PHHO2009US07674

PATIENT
  Age: 64 Year
  Sex: Female
  Weight: 46.2 kg

DRUGS (11)
  1. SOM230 [Suspect]
     Indication: NEUROENDOCRINE CARCINOMA
     Dosage: 900 UG, BID
     Route: 058
     Dates: start: 20090528
  2. AFINITOR [Suspect]
     Indication: NEUROENDOCRINE CARCINOMA
     Dosage: 10 MG, UNK
     Route: 048
     Dates: start: 20090528
  3. CLONIDINE [Concomitant]
  4. COMPAZINE [Concomitant]
  5. DILAUDID [Concomitant]
  6. KCL [Concomitant]
  7. MAGNESIUM OXIDE [Concomitant]
  8. MICARDIS [Concomitant]
  9. RITALIN [Concomitant]
  10. TOPROL XL [Concomitant]
  11. TRIAMTERENE AND HYDROCHLOROTHIAZID ^HARRIS^ [Concomitant]

REACTIONS (1)
  - Hyperglycaemia [Unknown]
